FAERS Safety Report 12781128 (Version 1)
Quarter: 2016Q3

REPORT INFORMATION
  Report Type: Spontaneous
  Country: DE (occurrence: DE)
  Receive Date: 20160926
  Receipt Date: 20160926
  Transmission Date: 20161109
  Serious: Yes (Other)
  Sender: FDA-Public Use
  Company Number: GXKR2016DE004466

PATIENT
  Age: 32 Year
  Sex: Male

DRUGS (1)
  1. CICLOSPORIN 1 A PHARMA [Suspect]
     Active Substance: CYCLOSPORINE
     Indication: PSORIASIS
     Dosage: 150 MG - 0 - 200 MG
     Route: 048

REACTIONS (1)
  - Infertility male [Unknown]
